FAERS Safety Report 18145122 (Version 1)
Quarter: 2020Q3

REPORT INFORMATION
  Report Type: Spontaneous
  Country: US (occurrence: US)
  Receive Date: 20200813
  Receipt Date: 20200813
  Transmission Date: 20201103
  Serious: No
  Sender: FDA-Public Use
  Company Number: US-PFIZER INC-2020306366

PATIENT
  Age: 51 Year
  Sex: Female
  Weight: 79.38 kg

DRUGS (2)
  1. BRAFTOVI [Suspect]
     Active Substance: ENCORAFENIB
     Indication: COLON CANCER
     Dosage: 300 MG, 1X/DAY (75MG, 4 CAPSULES BY MOUTH ONCE DAILY)
     Route: 048
     Dates: start: 2020, end: 202007
  2. MEKTOVI [Suspect]
     Active Substance: BINIMETINIB
     Indication: COLON CANCER
     Dosage: 45 MG, 2X/DAY (15MG, TAKE 3 TABLETS BY MOUTH TWICE DAILY)
     Route: 048
     Dates: start: 2020, end: 202007

REACTIONS (5)
  - Product use in unapproved indication [Unknown]
  - Blood test abnormal [Unknown]
  - Musculoskeletal stiffness [Unknown]
  - Renal disorder [Not Recovered/Not Resolved]
  - Off label use [Unknown]

NARRATIVE: CASE EVENT DATE: 202007
